FAERS Safety Report 7641794-1 (Version None)
Quarter: 2011Q3

REPORT INFORMATION
  Report Type: 
  Country: None (occurrence: None)
  Receive Date: 20110728
  Receipt Date: 20110721
  Transmission Date: 20111222
  Serious: Yes (Other)
  Sender: FDA-Public Use
  Company Number: GB-JNJFOC-20110709800

PATIENT
  Age: 11 Year
  Sex: Male

DRUGS (1)
  1. CONCERTA [Suspect]
     Indication: PRODUCT USED FOR UNKNOWN INDICATION
     Route: 048
     Dates: start: 20100401

REACTIONS (2)
  - ANAEMIA [None]
  - FEELING COLD [None]
